FAERS Safety Report 10021817 (Version 1)
Quarter: 2014Q1

REPORT INFORMATION
  Report Type: Spontaneous
  Country: US (occurrence: None)
  Receive Date: 20140313
  Receipt Date: 20140313
  Transmission Date: 20141002
  Serious: Yes (Hospitalization)
  Sender: FDA-Public Use
  Company Number: CPI 5658

PATIENT
  Age: 66 Year
  Sex: Male

DRUGS (3)
  1. N-ACETYLCYSTEINE [Suspect]
     Indication: TOXICITY TO VARIOUS AGENTS
     Route: 042
  2. ACTIVATED CHARCOAL [Concomitant]
  3. HEMOPERFUSION [Concomitant]

REACTIONS (6)
  - Haemodialysis [None]
  - Fluid overload [None]
  - Haemolytic uraemic syndrome [None]
  - Microangiopathic haemolytic anaemia [None]
  - Reticulocyte count increased [None]
  - Thrombocytopenia [None]
